FAERS Safety Report 20633150 (Version 1)
Quarter: 2022Q1

REPORT INFORMATION
  Report Type: Spontaneous
  Country: GR (occurrence: GR)
  Receive Date: 20220324
  Receipt Date: 20220324
  Transmission Date: 20220423
  Serious: Yes (Death, Other)
  Sender: FDA-Public Use
  Company Number: GR-SLATE RUN PHARMACEUTICALS-22GR000974

PATIENT

DRUGS (7)
  1. VORICONAZOLE [Suspect]
     Active Substance: VORICONAZOLE
     Indication: Bronchopulmonary aspergillosis
     Dosage: UNK
  2. VORICONAZOLE [Suspect]
     Active Substance: VORICONAZOLE
     Indication: Aspergillus infection
  3. DEXAMETHASONE [Concomitant]
     Active Substance: DEXAMETHASONE
     Indication: Bacterial test positive
     Dosage: 6 MILLIGRAM, QD
  4. REMDESIVIR [Concomitant]
     Active Substance: REMDESIVIR
     Indication: Bacterial test positive
  5. CEFTRIAXONE [Concomitant]
     Active Substance: CEFTRIAXONE
     Indication: Bacterial test positive
  6. MEROPENEM [Concomitant]
     Active Substance: MEROPENEM
     Indication: Acinetobacter infection
  7. COLISTIN [Concomitant]
     Active Substance: COLISTIN
     Indication: Acinetobacter infection

REACTIONS (16)
  - Multiple organ dysfunction syndrome [Fatal]
  - Septic shock [Fatal]
  - Bronchopulmonary aspergillosis [Unknown]
  - Pulmonary cavitation [Unknown]
  - Pulmonary embolism [Unknown]
  - Pyopneumothorax [Unknown]
  - Acinetobacter test positive [Unknown]
  - Streptococcus test positive [Unknown]
  - Klebsiella test positive [Unknown]
  - Bronchopleural fistula [Unknown]
  - Lung disorder [Unknown]
  - Intensive care unit acquired weakness [Unknown]
  - Treatment failure [Unknown]
  - Drug level below therapeutic [Unknown]
  - Pleural effusion [Unknown]
  - Drug resistance [Unknown]
